FAERS Safety Report 17505302 (Version 3)
Quarter: 2020Q1

REPORT INFORMATION
  Report Type: Spontaneous
  Country: CN (occurrence: CN)
  Receive Date: 20200305
  Receipt Date: 20200312
  Transmission Date: 20200409
  Serious: Yes (Other)
  Sender: FDA-Public Use
  Company Number: CN-009507513-2002CHN004062

PATIENT
  Age: 89 Year
  Sex: Male
  Weight: 75 kg

DRUGS (26)
  1. ASPIRIN. [Concomitant]
     Active Substance: ASPIRIN
     Dosage: 100 MILLIGRAM, QD
     Route: 048
     Dates: start: 20111009, end: 20111213
  2. ISOKET [Concomitant]
     Active Substance: ISOSORBIDE DINITRATE
     Dosage: 10 MILLIGRAM, QD
     Route: 041
     Dates: start: 20111123, end: 20111130
  3. CEFEPIME [Concomitant]
     Active Substance: CEFEPIME HYDROCHLORIDE
     Dosage: 2 GRAM, BID
     Route: 041
     Dates: start: 20111121, end: 20111202
  4. TALCID [Concomitant]
     Active Substance: HYDROTALCITE
     Indication: CHRONIC GASTRITIS
  5. ZOCOR [Suspect]
     Active Substance: SIMVASTATIN
     Indication: CARDIOVASCULAR DISORDER
     Dosage: 20 MILLIGRAM, QPM
     Route: 048
     Dates: start: 20111009, end: 20111123
  6. METOPROLOL. [Concomitant]
     Active Substance: METOPROLOL
     Dosage: 23.75 MG, QD
     Route: 048
     Dates: start: 20111009, end: 20111213
  7. ISOKET [Concomitant]
     Active Substance: ISOSORBIDE DINITRATE
     Indication: CARDIOMEGALY
     Dosage: 10 MILLIGRAM, QD
     Route: 041
     Dates: start: 20111009, end: 20111012
  8. ZHEN JU JIANG YA PIAN [Concomitant]
     Indication: HYPERTENSION
     Dosage: DISCONTINUITY RECEIVED
  9. LAN SU [Concomitant]
     Indication: PRODUCTIVE COUGH
     Dosage: 60 MILLIGRAM, BID
     Route: 041
     Dates: start: 20111009, end: 20111213
  10. YI SUO [Concomitant]
     Dosage: 0.4 GRAM, QD
     Route: 041
     Dates: start: 20111009, end: 20111123
  11. CEFEPIME [Concomitant]
     Active Substance: CEFEPIME HYDROCHLORIDE
     Indication: ANTI-INFECTIVE THERAPY
     Dosage: 2 GRAM, BID
     Route: 041
     Dates: start: 20111010, end: 20111027
  12. AO KE [Concomitant]
     Indication: GASTRIC MUCOSAL LESION
     Dosage: 40 MILLIGRAM, QD
     Route: 040
     Dates: start: 20111010, end: 20111213
  13. ZOCOR [Interacting]
     Active Substance: SIMVASTATIN
     Indication: CORONARY ARTERY DISEASE
  14. DIOVAN [Concomitant]
     Active Substance: VALSARTAN
     Indication: BLOOD PRESSURE ABNORMAL
     Dosage: 80 MILLIGRAM, QD
     Route: 048
     Dates: start: 20111009, end: 20111213
  15. TIENAM [Suspect]
     Active Substance: CILASTATIN SODIUM\IMIPENEM
     Indication: ANTI-INFECTIVE THERAPY
     Dosage: 0.5 GRAM, Q8H
     Route: 041
     Dates: start: 20111104, end: 20111121
  16. DOXAZOSIN [Concomitant]
     Active Substance: DOXAZOSIN MESYLATE
     Dosage: 4 MILLIGRAM, QD
     Route: 048
     Dates: start: 20111009, end: 20111223
  17. CLEXANE (ENOXAPARIN SODIUM) [Concomitant]
     Active Substance: ENOXAPARIN SODIUM
     Dosage: 4000 IU, QD
     Route: 058
     Dates: start: 20111010, end: 20111020
  18. KAI SHI [Concomitant]
     Active Substance: ALPROSTADIL
     Indication: CARDIOVASCULAR DISORDER
     Dosage: 20 MICROGRAM, QD
     Route: 040
     Dates: start: 20111010, end: 20111213
  19. LEVOFLOXACIN (+) SODIUM CHLORIDE [Concomitant]
     Active Substance: LEVOFLOXACIN
     Dosage: 0.5 GRAM, QD
     Route: 041
     Dates: start: 20111009, end: 20111027
  20. TALCID [Concomitant]
     Active Substance: HYDROTALCITE
     Indication: GASTROOESOPHAGEAL REFLUX DISEASE
  21. ZOCOR [Interacting]
     Active Substance: SIMVASTATIN
     Indication: ACUTE CORONARY SYNDROME
  22. PROSCAR [Suspect]
     Active Substance: FINASTERIDE
     Indication: BENIGN PROSTATIC HYPERPLASIA
     Dosage: 5 MILLIGRAM, QD
     Route: 048
     Dates: start: 20111009, end: 20111213
  23. FLUCONAZOLE. [Interacting]
     Active Substance: FLUCONAZOLE
     Indication: ANTI-INFECTIVE THERAPY
     Dosage: 100 MILLIGRAM, QD
     Route: 048
     Dates: start: 20111104, end: 20111121
  24. LASIX [Concomitant]
     Active Substance: FUROSEMIDE
     Dosage: 20 MILLIGRAM, QD
     Route: 048
     Dates: start: 20111009, end: 20111213
  25. DIOVEN [Concomitant]
     Indication: HYPERTENSION
     Dosage: REGULARLY RECEIVED AT NORMAL TIMES
  26. JINSHUIBAO [Concomitant]
     Indication: URINE ABNORMALITY

REACTIONS (4)
  - Myoglobin blood increased [Recovered/Resolved]
  - Myopathy toxic [Recovered/Resolved]
  - Candida infection [Unknown]
  - Drug interaction [Unknown]

NARRATIVE: CASE EVENT DATE: 2011
